FAERS Safety Report 7844104-X (Version None)
Quarter: 2011Q4

REPORT INFORMATION
  Report Type: 
  Country: None (occurrence: None)
  Receive Date: 20111025
  Receipt Date: 20111014
  Transmission Date: 20120403
  Serious: Yes (Death)
  Sender: FDA-Public Use
  Company Number: JP-SANOFI-AVENTIS-2011SA049478

PATIENT

DRUGS (2)
  1. DOCETAXEL [Suspect]
     Route: 065
  2. PACLITAXEL [Suspect]
     Route: 065

REACTIONS (6)
  - DEATH [None]
  - PNEUMONIA [None]
  - CARDIAC FAILURE [None]
  - FEBRILE NEUTROPENIA [None]
  - HEPATIC FAILURE [None]
  - NEUTROPENIA [None]
